FAERS Safety Report 4338023-3 (Version None)
Quarter: 2004Q2

REPORT INFORMATION
  Report Type: 
  Country: None (occurrence: None)
  Receive Date: 20040407
  Receipt Date: 20040325
  Transmission Date: 20050107
  Serious: Yes (Disabling)
  Sender: FDA-Public Use
  Company Number: 2004204514JP

PATIENT
  Age: 75 Year
  Sex: Female

DRUGS (4)
  1. XALATAN [Suspect]
     Indication: GLAUCOMA
     Dosage: QD, OPHTHALMIC
     Route: 047
     Dates: start: 20031104, end: 20040127
  2. TIMOLOL MALEATE [Suspect]
     Indication: GLAUCOMA
     Dosage: BID, OPHTHALMIC
     Route: 047
     Dates: start: 20031104
  3. ECOLICIN (ERYTHROMYCIN LACTOBIONATE) [Concomitant]
  4. FLUOROMETHOLONE (FLUOROMETHOLONE) [Concomitant]

REACTIONS (2)
  - DYSGEUSIA [None]
  - PAROSMIA [None]
